FAERS Safety Report 12603578 (Version 2)
Quarter: 2020Q2

REPORT INFORMATION
  Report Type: Report from Study
  Country: US (occurrence: US)
  Receive Date: 20160728
  Receipt Date: 20200615
  Transmission Date: 20200713
  Serious: Yes (Other)
  Sender: FDA-Public Use
  Company Number: US-SA-2016SA047871

PATIENT
  Age: 61 Year
  Sex: Male
  Weight: 97.5 kg

DRUGS (5)
  1. BENAZEPRIL;HYDROCHLOROTHIAZIDE [Concomitant]
     Dosage: UNK
  2. VITAMIN E [Concomitant]
     Active Substance: .ALPHA.-TOCOPHEROL
     Dosage: UNK
  3. VITAMIN D [ERGOCALCIFEROL] [Concomitant]
     Active Substance: ERGOCALCIFEROL
  4. TERIFLUNOMIDE. [Suspect]
     Active Substance: TERIFLUNOMIDE
     Indication: MULTIPLE SCLEROSIS
     Dosage: 14 DF, QD
     Route: 048
     Dates: start: 20160201, end: 201605
  5. TERIFLUNOMIDE. [Suspect]
     Active Substance: TERIFLUNOMIDE
     Dosage: 14 MG, QD
     Route: 048

REACTIONS (2)
  - Tuberculosis [Unknown]
  - Pain [Unknown]

NARRATIVE: CASE EVENT DATE: 20160223
